FAERS Safety Report 23701421 (Version 1)
Quarter: 2024Q2

REPORT INFORMATION
  Report Type: Spontaneous
  Country: ES (occurrence: ES)
  Receive Date: 20240403
  Receipt Date: 20240403
  Transmission Date: 20240716
  Serious: Yes (Other)
  Sender: FDA-Public Use
  Company Number: None

PATIENT
  Age: 42 Year
  Sex: Male

DRUGS (4)
  1. LEVOFLOXACIN [Suspect]
     Active Substance: LEVOFLOXACIN
     Indication: Respiratory tract infection
     Dosage: LEVOFLOXACIN TEVA EFG, 14 TABLETS
     Route: 048
     Dates: start: 20240120, end: 20240125
  2. SALOFALK [Concomitant]
     Indication: Product used for unknown indication
     Dosage: SALOFALK, 30 SUPPOSITORIES
     Route: 054
     Dates: start: 20211006
  3. PLANTAGO OVATA CINFA [Concomitant]
     Indication: Product used for unknown indication
     Dosage: PLANTAGO OVATA CINFA , 30 SACHETS
     Route: 048
     Dates: start: 20200122
  4. BISOPROLOL [Concomitant]
     Active Substance: BISOPROLOL\BISOPROLOL FUMARATE
     Indication: Product used for unknown indication
     Dosage: BISOPROLOL COR SANDOZ  EFG , 20 TABLETS
     Route: 048
     Dates: start: 20230426

REACTIONS (2)
  - Hallucination, auditory [Recovered/Resolved]
  - Confusional state [Recovering/Resolving]

NARRATIVE: CASE EVENT DATE: 20240125
